FAERS Safety Report 8312323-4 (Version None)
Quarter: 2012Q2

REPORT INFORMATION
  Report Type: 
  Country: None (occurrence: None)
  Receive Date: 20120425
  Receipt Date: 20120413
  Transmission Date: 20120825
  Serious: Yes (Hospitalization)
  Sender: FDA-Public Use
  Company Number: HK-ROCHE-1051295

PATIENT
  Sex: Male
  Weight: 45.6 kg

DRUGS (28)
  1. CHLORPHENIRAMINE MALEATE [Concomitant]
     Dates: start: 20120301
  2. FAMOTIDINE [Concomitant]
     Dates: start: 20120130
  3. ALBUTEROL [Concomitant]
     Dates: start: 20120402
  4. CHLORPHENIRAMINE MALEATE [Concomitant]
     Dates: start: 20120130
  5. FAMOTIDINE [Concomitant]
     Dates: start: 20120224
  6. SALMETEROL [Concomitant]
     Dates: start: 20120130
  7. FLUTICASONE FUROATE [Concomitant]
     Dates: start: 20120130
  8. CISPLATIN [Suspect]
     Indication: NASOPHARYNGEAL CANCER
     Dosage: LAST DOSE PRIOR TO SAE: 28/JAN/2012
     Route: 042
     Dates: start: 20120127
  9. CLOTRIMAZOLE [Concomitant]
     Dates: start: 20120130
  10. DILTIAZEM HCL [Concomitant]
     Dates: start: 20120224
  11. METOCLOPRAMIDE [Concomitant]
     Dates: start: 20110226
  12. METOCLOPRAMIDE [Concomitant]
     Dates: start: 20120412
  13. SALMETEROL [Concomitant]
     Dates: start: 20120224
  14. TIOTROPIUM [Concomitant]
     Dates: start: 20120224
  15. COCILLANA [Concomitant]
     Dates: start: 20120130
  16. ACETYLCYSTEINE [Concomitant]
     Dates: start: 20120224
  17. FLUTICASONE FUROATE [Concomitant]
     Dates: start: 20120224
  18. ENZYPLEX (HONG KONG) [Concomitant]
     Dates: start: 20120130
  19. XELODA [Suspect]
     Indication: NASOPHARYNGEAL CANCER
     Dosage: LAST DOSE PRIOR TO SAE: 09/FEB/2012
     Route: 048
     Dates: start: 20120127
  20. ALBUTEROL [Concomitant]
     Dates: start: 20120130
  21. COCILLANA [Concomitant]
     Dates: start: 20120323
  22. PARAFFIN [Concomitant]
     Dates: start: 20110226
  23. PYRIDOXINE HCL [Concomitant]
     Dates: start: 20120226
  24. CARBOPLATIN [Suspect]
     Indication: NASOPHARYNGEAL CANCER
     Route: 042
     Dates: start: 20120305, end: 20120417
  25. CLOTRIMAZOLE [Concomitant]
     Dates: start: 20120224
  26. ALBUTEROL [Concomitant]
     Dates: start: 20120224
  27. TIOTROPIUM [Concomitant]
     Dates: start: 20111230
  28. CODEINE [Concomitant]
     Dates: start: 20110226

REACTIONS (3)
  - MUCOSAL INFLAMMATION [None]
  - WEIGHT DECREASED [None]
  - CHRONIC OBSTRUCTIVE PULMONARY DISEASE [None]
